FAERS Safety Report 7489044-3 (Version None)
Quarter: 2011Q2

REPORT INFORMATION
  Report Type: 
  Country: None (occurrence: None)
  Receive Date: 20110518
  Receipt Date: 20110510
  Transmission Date: 20111010
  Serious: Yes (Death, Hospitalization)
  Sender: FDA-Public Use
  Company Number: US-CELGENEUS-163-21880-11051290

PATIENT
  Age: 66 Year
  Sex: Male

DRUGS (7)
  1. LIPITOR [Concomitant]
     Route: 065
  2. ZETIA [Concomitant]
     Route: 065
  3. REVLIMID [Suspect]
     Dosage: 10 MILLIGRAM
     Route: 048
     Dates: start: 20100707
  4. FUROSEMIDE [Concomitant]
     Route: 065
  5. PROCRIT [Concomitant]
     Route: 065
  6. COMBIVENT [Concomitant]
     Route: 065
  7. GLIPIZIDE [Concomitant]
     Route: 065

REACTIONS (2)
  - NON-SMALL CELL LUNG CANCER STAGE IV [None]
  - THROMBOCYTOPENIA [None]
